FAERS Safety Report 5688825-6 (Version None)
Quarter: 2008Q1

REPORT INFORMATION
  Report Type: 
  Country: None (occurrence: None)
  Receive Date: 20080331
  Receipt Date: 20020306
  Transmission Date: 20080703
  Serious: Yes (Death, Other)
  Sender: FDA-Public Use
  Company Number: FR-ROCHE-308559

PATIENT
  Age: 78 Year
  Sex: Male
  Weight: 58 kg

DRUGS (10)
  1. ROCEPHIN [Suspect]
     Route: 030
     Dates: start: 20020304, end: 20020304
  2. AVLOCARDYL [Concomitant]
     Indication: PROPHYLAXIS
     Route: 048
     Dates: start: 19920101
  3. MIXTARD HUMAN 70/30 [Concomitant]
     Route: 065
     Dates: start: 19940101
  4. EFFERALGAN [Concomitant]
     Route: 048
     Dates: start: 20020101
  5. BRONCHOKOD [Concomitant]
     Route: 048
     Dates: start: 20020101
  6. IMOVANE [Concomitant]
     Route: 048
  7. VITAMIN B COMPLEX CAP [Concomitant]
     Route: 048
     Dates: start: 19930101
  8. CREON [Concomitant]
     Route: 048
     Dates: start: 19930101
  9. DUPHALAC [Concomitant]
     Indication: CONSTIPATION
     Route: 048
  10. LASILIX [Concomitant]
     Dates: start: 20020101

REACTIONS (4)
  - COMA [None]
  - DEATH [None]
  - DYSPNOEA [None]
  - MALAISE [None]
